FAERS Safety Report 12997840 (Version 1)
Quarter: 2016Q4

REPORT INFORMATION
  Report Type: Other
  Country: CA (occurrence: CA)
  Receive Date: 20161205
  Receipt Date: 20161205
  Transmission Date: 20170207
  Serious: Yes (Other)
  Sender: FDA-Public Use
  Company Number: CA-APOTEX-2016AP015072

PATIENT
  Age: 50 Year
  Sex: Female

DRUGS (1)
  1. APO-RISPERIDONE [Suspect]
     Active Substance: RISPERIDONE
     Indication: SCHIZOPHRENIA
     Dosage: 6 MG, EVERY DAY
     Route: 065

REACTIONS (3)
  - Drooling [Not Recovered/Not Resolved]
  - Akinesia [Not Recovered/Not Resolved]
  - Tremor [Not Recovered/Not Resolved]
